FAERS Safety Report 8799404 (Version 2)
Quarter: 2013Q1

REPORT INFORMATION
  Report Type: Spontaneous
  Country: US (occurrence: US)
  Receive Date: 20120919
  Receipt Date: 20130115
  Transmission Date: 20140127
  Serious: No
  Sender: FDA-Public Use
  Company Number: US-009507513-1209USA001655

PATIENT
  Age: 42 Year
  Sex: Male

DRUGS (2)
  1. PROPECIA [Suspect]
     Indication: ALOPECIA
     Dosage: 1 MG, QD
     Route: 048
     Dates: start: 1997
  2. PROPECIA [Suspect]
     Indication: PROPHYLAXIS

REACTIONS (2)
  - Alopecia [Not Recovered/Not Resolved]
  - Semen volume increased [Not Recovered/Not Resolved]
